FAERS Safety Report 9467364 (Version 1)
Quarter: 2013Q3

REPORT INFORMATION
  Report Type: Spontaneous
  Country: IT (occurrence: IT)
  Receive Date: 20130821
  Receipt Date: 20130821
  Transmission Date: 20140515
  Serious: Yes (Hospitalization)
  Sender: FDA-Public Use
  Company Number: IT-BRISTOL-MYERS SQUIBB COMPANY-19201748

PATIENT
  Age: 75 Year
  Sex: Male

DRUGS (1)
  1. COUMADIN TABS 5 MG [Suspect]
     Indication: DEEP VEIN THROMBOSIS
     Dosage: STOPPED ON 08-JUN-2013
     Route: 048
     Dates: start: 20130101

REACTIONS (2)
  - Asthenia [Unknown]
  - Epistaxis [Unknown]
